FAERS Safety Report 8594982-4 (Version None)
Quarter: 2012Q3

REPORT INFORMATION
  Report Type: 
  Country: None (occurrence: None)
  Receive Date: 20120815
  Receipt Date: 20120810
  Transmission Date: 20120928
  Serious: Yes (Other)
  Sender: FDA-Public Use
  Company Number: PHHY2012AR069896

PATIENT
  Sex: Female

DRUGS (1)
  1. ONBREZ [Suspect]
     Indication: CHRONIC OBSTRUCTIVE PULMONARY DISEASE
     Dosage: 300 UG, QD

REACTIONS (7)
  - DIARRHOEA [None]
  - DYSPHONIA [None]
  - ASTHENIA [None]
  - BRONCHOSPASM [None]
  - MALAISE [None]
  - VOMITING [None]
  - FATIGUE [None]
